FAERS Safety Report 10214773 (Version 3)
Quarter: 2014Q2

REPORT INFORMATION
  Report Type: Spontaneous
  Country: US (occurrence: US)
  Receive Date: 20140603
  Receipt Date: 20140627
  Transmission Date: 20141212
  Serious: Yes (Hospitalization, Other)
  Sender: FDA-Public Use
  Company Number: US-B.I. PHARMACEUTICALS,INC./RIDGEFIELD-2014-BI-24293BP

PATIENT
  Age: 69 Year
  Sex: Female
  Weight: 90.26 kg

DRUGS (14)
  1. COMBIVENT [Suspect]
     Indication: CHRONIC OBSTRUCTIVE PULMONARY DISEASE
     Dosage: DOSE PER APPLICATION: 20 MCG/100 MCG; DAILY DOSE: 160 MEQ/800 MCG
     Route: 055
     Dates: start: 201306
  2. LASIX [Concomitant]
     Indication: FLUID RETENTION
     Dosage: 40 MG
     Route: 048
  3. ASPIRIN [Concomitant]
     Dosage: 81 MG
     Route: 048
  4. BACLOFEN [Concomitant]
     Dosage: 10 MG
     Route: 048
  5. CARVEDILOL [Concomitant]
     Indication: HYPERTENSION
     Dosage: 12.5 MG
     Route: 048
  6. CITALOPRAM HBR [Concomitant]
     Dosage: 20 MG
     Route: 048
  7. KLONIPIN [Concomitant]
     Indication: ANXIETY
     Dosage: 0.5 MG
     Route: 048
  8. FERROUS SULFATE [Concomitant]
     Indication: SUPPLEMENTATION THERAPY
     Dosage: 2 ANZ
     Route: 048
  9. FOLBEE [Concomitant]
     Indication: SUPPLEMENTATION THERAPY
     Dosage: 1 ANZ
     Route: 048
  10. OMEPRAZOLE [Concomitant]
     Indication: GASTROOESOPHAGEAL REFLUX DISEASE
     Dosage: 40 MG
     Route: 048
  11. HYDRALAZINE HCL [Concomitant]
     Indication: HYPERTENSION
     Dosage: 150 MG
     Route: 048
  12. SODIUM CITRATE [Concomitant]
     Indication: SUPPLEMENTATION THERAPY
     Dosage: 20 ML
     Route: 048
  13. SPIRIVA [Concomitant]
     Indication: CHRONIC OBSTRUCTIVE PULMONARY DISEASE
     Dosage: 18 MCG
     Route: 055
  14. HYDROCODONE [Concomitant]
     Indication: PAIN
     Dosage: DOSE PER APPLICATION: 5 MG-325 MG;
     Route: 048

REACTIONS (10)
  - Fall [Recovered/Resolved]
  - Renal failure [Recovered/Resolved]
  - Palpitations [Recovered/Resolved]
  - Peripheral swelling [Not Recovered/Not Resolved]
  - Skin ulcer [Recovered/Resolved]
  - Wrist fracture [Recovered/Resolved]
  - Arthralgia [Not Recovered/Not Resolved]
  - Arthralgia [Not Recovered/Not Resolved]
  - Drug administration error [Unknown]
  - Product quality issue [Unknown]
